FAERS Safety Report 4750805-2 (Version None)
Quarter: 2005Q3

REPORT INFORMATION
  Report Type: 
  Country: None (occurrence: None)
  Receive Date: 20050822
  Receipt Date: 20050805
  Transmission Date: 20060218
  Serious: Yes (Other)
  Sender: FDA-Public Use
  Company Number: 204979

PATIENT
  Age: 35 Year
  Sex: Female

DRUGS (2)
  1. AVONEX [Suspect]
     Indication: MULTIPLE SCLEROSIS
     Dosage: 30 UG QW IM; 30 UG QW IM
     Route: 030
     Dates: start: 20030201
  2. AVONEX [Suspect]
     Indication: MULTIPLE SCLEROSIS
     Dosage: 30 UG QW IM; 30 UG QW IM
     Route: 030
     Dates: start: 20030903

REACTIONS (1)
  - BRAIN NEOPLASM [None]
